FAERS Safety Report 8774102 (Version 1)
Quarter: 2012Q4

REPORT INFORMATION
  Report Type: 
  Country: GB (occurrence: GB)
  Receive Date: 20120908
  Receipt Date: 20120908
  Transmission Date: 20130627
  Serious: Yes (Disabling, Other)
  Sender: FDA-Public Use
  Company Number: GB-ABBOTT-12P-167-0975252-00

PATIENT
  Age: 33 Year
  Sex: Male

DRUGS (2)
  1. DEPAKOTE [Suspect]
     Indication: AGITATION
  2. DIAZEPAM [Concomitant]
     Indication: PRODUCT USED FOR UNKNOWN INDICATION

REACTIONS (2)
  - Choking [Recovered/Resolved]
  - Dyspnoea [Unknown]
